FAERS Safety Report 6525701-0 (Version None)
Quarter: 2009Q4

REPORT INFORMATION
  Report Type: 
  Country: None (occurrence: None)
  Receive Date: 20091228
  Receipt Date: 20091214
  Transmission Date: 20100525
  Serious: Yes (Other)
  Sender: FDA-Public Use
  Company Number: 1-21056119

PATIENT
  Age: 56 Year
  Sex: Female
  Weight: 60.8727 kg

DRUGS (10)
  1. ULTIVA [Suspect]
     Dosage: INTRAVENOUS
     Route: 042
     Dates: start: 20090514, end: 20090514
  2. FORANE [Suspect]
     Indication: GENERAL ANAESTHESIA
     Dosage: 0.6-0.8%,
     Dates: start: 20090514, end: 20090514
  3. ROCURONIUM BROMIDE [Suspect]
     Indication: INDUCTION OF ANAESTHESIA
     Dates: start: 20090514, end: 20090514
  4. FENTANYL CITRATE [Suspect]
     Indication: ANALGESIC THERAPY
     Dosage: 4 ML, 2 IN 1 D, INTRAVENOUS
     Route: 042
     Dates: start: 20090514, end: 20090514
  5. MANNITOL [Suspect]
     Indication: POLYURIA
     Dosage: 300 ML, 1 IN 1 D,
     Dates: start: 20090514, end: 20090514
  6. MEPIVACAINE HCL [Suspect]
     Indication: ANALGESIC THERAPY
     Dosage: 3 ML, 1 IN 1 D,
     Dates: start: 20090514, end: 20090514
  7. PROTAMINE SULFATE [Suspect]
     Dosage: 3 ML, 1 IN 1 D,
     Dates: start: 20090514, end: 20090514
  8. ATVAGOREVERSE [Suspect]
     Dosage: 6 ML, 1 IN 1 D, INTRAVENOUS
     Route: 042
     Dates: start: 20090514, end: 20090514
  9. PROPOFOL [Suspect]
     Indication: INDUCTION OF ANAESTHESIA
     Dosage: 70 MG, INTRAVENOUS
     Route: 042
     Dates: start: 20090514, end: 20090514
  10. ATROPINE SULFATE HYDRATE [Concomitant]

REACTIONS (1)
  - ANGLE CLOSURE GLAUCOMA [None]
